FAERS Safety Report 9102414 (Version 1)
Quarter: 2013Q1

REPORT INFORMATION
  Report Type: Spontaneous
  Country: US (occurrence: US)
  Receive Date: 20130218
  Receipt Date: 20130218
  Transmission Date: 20140127
  Serious: No
  Sender: FDA-Public Use
  Company Number: US-BIOGENIDEC-2013BI012981

PATIENT
  Age: 46 Year
  Sex: Female

DRUGS (1)
  1. TYSABRI [Suspect]
     Indication: MULTIPLE SCLEROSIS
     Route: 042
     Dates: start: 20121204

REACTIONS (4)
  - Vertigo [Not Recovered/Not Resolved]
  - Diabetes mellitus [Recovered/Resolved]
  - Asthenia [Recovered/Resolved]
  - Malaise [Not Recovered/Not Resolved]
